FAERS Safety Report 9849415 (Version 1)
Quarter: 2014Q1

REPORT INFORMATION
  Report Type: Spontaneous
  Country: US (occurrence: None)
  Receive Date: 20140124
  Receipt Date: 20140124
  Transmission Date: 20141002
  Serious: No
  Sender: FDA-Public Use
  Company Number: None

PATIENT
  Age: 65 Year
  Sex: Female
  Weight: 62.14 kg

DRUGS (7)
  1. TERBINAFINE HCL [Suspect]
     Route: 048
     Dates: start: 20131004, end: 20131118
  2. ESTRADIOL [Suspect]
  3. DILTIAZEM HCL [Suspect]
  4. HYDROCHLOROTHIAZIDE [Suspect]
  5. BABY ASPIRIN [Suspect]
  6. CITRACAL D [Concomitant]
  7. CENTRUM SPECIALIST HEART [Concomitant]

REACTIONS (6)
  - Dysgeusia [None]
  - Ageusia [None]
  - Food aversion [None]
  - Aptyalism [None]
  - Dysphagia [None]
  - Oropharyngeal pain [None]
